FAERS Safety Report 17037431 (Version 2)
Quarter: 2019Q4

REPORT INFORMATION
  Report Type: Spontaneous
  Country: US (occurrence: US)
  Receive Date: 20191115
  Receipt Date: 20191119
  Transmission Date: 20200122
  Serious: No
  Sender: FDA-Public Use
  Company Number: US-PFIZER INC-2019493347

PATIENT
  Age: 55 Year
  Sex: Male
  Weight: 104.3 kg

DRUGS (1)
  1. VIAGRA [Suspect]
     Active Substance: SILDENAFIL CITRATE
     Indication: ERECTILE DYSFUNCTION
     Dosage: 50 MG, UNK
     Route: 048

REACTIONS (2)
  - Drug ineffective [Unknown]
  - Product prescribing error [Unknown]
